FAERS Safety Report 12523050 (Version 4)
Quarter: 2016Q3

REPORT INFORMATION
  Report Type: Report from Study
  Country: CN (occurrence: CN)
  Receive Date: 20160701
  Receipt Date: 20160822
  Transmission Date: 20161109
  Serious: Yes (Hospitalization, Other)
  Sender: FDA-Public Use
  Company Number: PHHY2016CN088244

PATIENT
  Age: 75 Year
  Sex: Female
  Weight: 77 kg

DRUGS (2)
  1. VASOREL [Concomitant]
     Indication: CORONARY ARTERY DISEASE
     Dosage: 20 MG, UNK
     Route: 065
     Dates: start: 200808
  2. EXFORGE [Suspect]
     Active Substance: AMLODIPINE BESYLATE\VALSARTAN
     Indication: HYPERTENSION
     Dosage: 1 DF (AMLODIPINE 5 MG AND VALSARTAN 80 MG), QD
     Route: 048
     Dates: start: 201308

REACTIONS (15)
  - Coronary artery dilatation [Recovered/Resolved with Sequelae]
  - Aortic arteriosclerosis [Unknown]
  - Hypertensive heart disease [Recovered/Resolved with Sequelae]
  - Dizziness [Recovered/Resolved with Sequelae]
  - Extrasystoles [Unknown]
  - Blood pressure increased [Recovered/Resolved with Sequelae]
  - Dizziness [Recovered/Resolved with Sequelae]
  - Systemic scleroderma [Unknown]
  - Blood pressure increased [Recovered/Resolved with Sequelae]
  - Bundle branch block left [Unknown]
  - Dizziness [Recovered/Resolved with Sequelae]
  - Lipids increased [Recovered/Resolved with Sequelae]
  - Dyspnoea [Recovered/Resolved with Sequelae]
  - Lipids increased [Recovered/Resolved with Sequelae]
  - Dizziness [Recovered/Resolved with Sequelae]

NARRATIVE: CASE EVENT DATE: 20140417
